FAERS Safety Report 13072939 (Version 1)
Quarter: 2016Q4

REPORT INFORMATION
  Report Type: Spontaneous
  Country: US (occurrence: US)
  Receive Date: 20161229
  Receipt Date: 20161229
  Transmission Date: 20170207
  Serious: No
  Sender: FDA-Public Use
  Company Number: US-PFIZER INC-2016601715

PATIENT
  Age: 47 Year
  Sex: Female

DRUGS (4)
  1. AZULFIDINE [Suspect]
     Active Substance: SULFASALAZINE
     Indication: SPONDYLOARTHROPATHY
     Dosage: 1000 MG, 2X/DAY (TAKE 2 TABS BY MOUTH TWICE A DAY)
     Route: 048
     Dates: start: 20160101
  2. AZULFIDINE [Suspect]
     Active Substance: SULFASALAZINE
     Dosage: 1500 MG, DAILY
  3. AZULFIDINE [Suspect]
     Active Substance: SULFASALAZINE
     Dosage: 1000 MG, DAILY
  4. AZULFIDINE [Suspect]
     Active Substance: SULFASALAZINE
     Dosage: 7000 MG, DAILY

REACTIONS (3)
  - Product use issue [Unknown]
  - Intentional product misuse [Unknown]
  - Abdominal discomfort [Unknown]
